FAERS Safety Report 9457409 (Version 15)
Quarter: 2015Q4

REPORT INFORMATION
  Report Type: Report from Study
  Country: CA (occurrence: CA)
  Receive Date: 20130814
  Receipt Date: 20151216
  Transmission Date: 20160305
  Serious: Yes (Hospitalization, Other)
  Sender: FDA-Public Use
  Company Number: CA-ROCHE-730464

PATIENT
  Age: 59 Year
  Sex: Male
  Weight: 93 kg

DRUGS (44)
  1. ACTEMRA [Suspect]
     Active Substance: TOCILIZUMAB
     Route: 042
     Dates: start: 20100913
  2. ACTEMRA [Suspect]
     Active Substance: TOCILIZUMAB
     Route: 042
     Dates: start: 20110907
  3. CORTISONE [Suspect]
     Active Substance: CORTISONE\HYDROCORTISONE
     Indication: PRODUCT USED FOR UNKNOWN INDICATION
     Route: 065
  4. APO-LANSOPRAZOLE [Concomitant]
     Route: 065
  5. ACTEMRA [Suspect]
     Active Substance: TOCILIZUMAB
     Route: 042
     Dates: start: 20110713
  6. RITUXAN [Suspect]
     Active Substance: RITUXIMAB
     Indication: RHEUMATOID ARTHRITIS
     Route: 042
     Dates: start: 20140617, end: 20150721
  7. SULFASALAZINE. [Concomitant]
     Active Substance: SULFASALAZINE
     Route: 065
  8. METHYLPREDNISOLONE. [Concomitant]
     Active Substance: METHYLPREDNISOLONE
     Indication: PREMEDICATION
     Route: 042
     Dates: start: 20140617
  9. ACETAMINOPHEN. [Concomitant]
     Active Substance: ACETAMINOPHEN
     Indication: PREMEDICATION
     Route: 048
     Dates: start: 20140617
  10. ACTEMRA [Suspect]
     Active Substance: TOCILIZUMAB
     Route: 042
     Dates: start: 20101019
  11. ACTEMRA [Suspect]
     Active Substance: TOCILIZUMAB
     Route: 042
     Dates: start: 20110518
  12. ACTEMRA [Suspect]
     Active Substance: TOCILIZUMAB
     Route: 042
     Dates: start: 20131128, end: 20140515
  13. JAMP-CALCIUM [Concomitant]
     Route: 065
  14. DIPHENHYDRAMINE HCL [Concomitant]
     Active Substance: DIPHENHYDRAMINE HYDROCHLORIDE
     Indication: PREMEDICATION
     Route: 048
     Dates: start: 20140617
  15. NAPROSYN [Concomitant]
     Active Substance: NAPROXEN
  16. ACTEMRA [Suspect]
     Active Substance: TOCILIZUMAB
     Route: 042
     Dates: start: 20101229
  17. ACTEMRA [Suspect]
     Active Substance: TOCILIZUMAB
     Route: 042
     Dates: start: 20110713
  18. MICARDIS PLUS [Concomitant]
     Active Substance: HYDROCHLOROTHIAZIDE\TELMISARTAN
  19. SULFASALAZINE. [Concomitant]
     Active Substance: SULFASALAZINE
  20. EZETROL [Concomitant]
     Active Substance: EZETIMIBE
  21. ATORVASTATIN [Concomitant]
     Active Substance: ATORVASTATIN
  22. ACTEMRA [Suspect]
     Active Substance: TOCILIZUMAB
     Indication: RHEUMATOID ARTHRITIS
     Route: 042
     Dates: start: 20100816
  23. ACTEMRA [Suspect]
     Active Substance: TOCILIZUMAB
     Route: 042
     Dates: start: 20101116
  24. ACTEMRA [Suspect]
     Active Substance: TOCILIZUMAB
     Route: 042
     Dates: start: 20110420
  25. FOLIC ACID. [Concomitant]
     Active Substance: FOLIC ACID
  26. ACTEMRA [Suspect]
     Active Substance: TOCILIZUMAB
     Route: 042
     Dates: start: 20110713
  27. ACTEMRA [Suspect]
     Active Substance: TOCILIZUMAB
     Route: 042
     Dates: start: 20111202
  28. CYMBALTA [Concomitant]
     Active Substance: DULOXETINE HYDROCHLORIDE
  29. METHOTREXATE [Concomitant]
     Active Substance: METHOTREXATE
     Route: 065
  30. PREDNISONE. [Concomitant]
     Active Substance: PREDNISONE
     Route: 065
  31. BROMAZEPAM [Concomitant]
     Active Substance: BROMAZEPAM
     Route: 065
  32. ALENDRONATE [Concomitant]
     Active Substance: ALENDRONATE SODIUM
  33. DOCUSATE SODIUM. [Concomitant]
     Active Substance: DOCUSATE SODIUM
  34. ACTEMRA [Suspect]
     Active Substance: TOCILIZUMAB
     Route: 042
     Dates: start: 20110615
  35. ACTEMRA [Suspect]
     Active Substance: TOCILIZUMAB
     Dosage: LAST INFUSION WAS GIVEN ON 20/FEB/2014
     Route: 042
     Dates: start: 20121227
  36. SENOKOT [Concomitant]
     Active Substance: SENNOSIDES
  37. METHOTREXATE [Concomitant]
     Active Substance: METHOTREXATE
  38. ACTEMRA [Suspect]
     Active Substance: TOCILIZUMAB
     Route: 042
     Dates: start: 20110126
  39. ACTEMRA [Suspect]
     Active Substance: TOCILIZUMAB
     Route: 042
     Dates: start: 20110223
  40. OXYNEO [Concomitant]
     Active Substance: OXYCODONE
  41. LIPITOR [Concomitant]
     Active Substance: ATORVASTATIN CALCIUM
     Route: 065
  42. BROMAZEPAM [Concomitant]
     Active Substance: BROMAZEPAM
     Route: 065
  43. APO-TRAZODONE [Concomitant]
     Active Substance: TRAZODONE HYDROCHLORIDE
  44. TYLENOL [Concomitant]
     Active Substance: ACETAMINOPHEN

REACTIONS (38)
  - Hypersensitivity [Unknown]
  - Arthralgia [Not Recovered/Not Resolved]
  - Sleep disorder [Recovered/Resolved]
  - Fungal infection [Unknown]
  - Hyperaesthesia [Unknown]
  - Abdominal pain lower [Not Recovered/Not Resolved]
  - Painful respiration [Not Recovered/Not Resolved]
  - Erythema [Recovering/Resolving]
  - Pain in extremity [Not Recovered/Not Resolved]
  - Rash erythematous [Unknown]
  - Drug ineffective [Unknown]
  - Hot flush [Not Recovered/Not Resolved]
  - Heart rate increased [Unknown]
  - Infusion related reaction [Unknown]
  - Abdominal pain lower [Unknown]
  - Therapeutic response decreased [Not Recovered/Not Resolved]
  - Pain [Unknown]
  - Blood pressure increased [Unknown]
  - Bursitis [Unknown]
  - Weight increased [Unknown]
  - Dizziness [Unknown]
  - Blood pressure decreased [Unknown]
  - Joint swelling [Unknown]
  - Oxygen saturation decreased [Unknown]
  - Blood pressure increased [Unknown]
  - Dyspnoea [Unknown]
  - Feeling hot [Unknown]
  - Cold sweat [Not Recovered/Not Resolved]
  - Wheezing [Unknown]
  - Fatigue [Unknown]
  - Sensory loss [Unknown]
  - Joint range of motion decreased [Unknown]
  - No therapeutic response [Not Recovered/Not Resolved]
  - Headache [Not Recovered/Not Resolved]
  - Respiratory rate increased [Unknown]
  - Blood glucose increased [Unknown]
  - Localised infection [Recovered/Resolved]
  - Dyspnoea exertional [Not Recovered/Not Resolved]

NARRATIVE: CASE EVENT DATE: 201009
